FAERS Safety Report 11967006 (Version 6)
Quarter: 2016Q1

REPORT INFORMATION
  Report Type: Report from Study
  Country: US (occurrence: US)
  Receive Date: 20160127
  Receipt Date: 20160325
  Transmission Date: 20160526
  Serious: Yes (Other)
  Sender: FDA-Public Use
  Company Number: US-TEVA-629061USA

PATIENT
  Age: 40 Year
  Sex: Male
  Weight: 95.79 kg

DRUGS (7)
  1. PERPHENAZINE. [Concomitant]
     Active Substance: PERPHENAZINE
  2. GEMFIBROZIL. [Concomitant]
     Active Substance: GEMFIBROZIL
  3. CLOZAPINE. [Suspect]
     Active Substance: CLOZAPINE
     Indication: SCHIZOPHRENIA
     Dosage: TITRATION UP TO 100MG QD
     Route: 048
     Dates: start: 20151215, end: 20160114
  4. TOPAMAX [Concomitant]
     Active Substance: TOPIRAMATE
  5. LORAZEPAM. [Concomitant]
     Active Substance: LORAZEPAM
  6. ABILIFY [Concomitant]
     Active Substance: ARIPIPRAZOLE
  7. TRAZODONE [Concomitant]
     Active Substance: TRAZODONE HYDROCHLORIDE

REACTIONS (2)
  - Agranulocytosis [Recovered/Resolved]
  - Granulocytopenia [Recovered/Resolved]

NARRATIVE: CASE EVENT DATE: 20160113
